FAERS Safety Report 5282598-7 (Version None)
Quarter: 2007Q1

REPORT INFORMATION
  Report Type: 
  Country: None (occurrence: None)
  Receive Date: 20070326
  Receipt Date: 20070313
  Transmission Date: 20070707
  Serious: Yes (Other)
  Sender: FDA-Public Use
  Company Number: B0463055A

PATIENT
  Sex: Male

DRUGS (4)
  1. PAXIL [Suspect]
     Dosage: TRANSPLACENTARY
     Route: 064
  2. RISPERIDONE [Suspect]
     Dosage: TRANSPLACENTARY
     Route: 064
  3. LEVOTHYROXINE SODIUM [Suspect]
     Dosage: TRANSPLACENTARY
     Route: 064
  4. LORAZEPAM [Suspect]
     Dosage: .5 MG / SIX TIMES PER DAY / TRANSPL
     Route: 064

REACTIONS (3)
  - DRUG EXPOSURE DURING PREGNANCY [None]
  - OLIGOHYDRAMNIOS [None]
  - PREMATURE BABY [None]
